FAERS Safety Report 8677241 (Version 3)
Quarter: 2012Q4

REPORT INFORMATION
  Report Type: 
  Country: JP (occurrence: JP)
  Receive Date: 20120723
  Receipt Date: 20121001
  Transmission Date: 20130627
  Serious: Yes (Other)
  Sender: FDA-Public Use
  Company Number: JP-JNJFOC-20120708770

PATIENT
  Age: 66 Year
  Sex: Male

DRUGS (2)
  1. DUROTEP [Suspect]
     Indication: PAIN
     Route: 062
  2. DIAZEPAM [Suspect]
     Indication: SEDATION
     Route: 054

REACTIONS (1)
  - Delirium [Not Recovered/Not Resolved]
